FAERS Safety Report 13462899 (Version 2)
Quarter: 2017Q2

REPORT INFORMATION
  Report Type: Spontaneous
  Country: US (occurrence: US)
  Receive Date: 20170420
  Receipt Date: 20170626
  Transmission Date: 20170830
  Serious: Yes (Hospitalization)
  Sender: FDA-Public Use
  Company Number: US-BAUSCH-BL-2017-010142

PATIENT
  Sex: Male

DRUGS (1)
  1. XIFAXAN [Suspect]
     Active Substance: RIFAXIMIN
     Indication: COMA HEPATIC
     Route: 065

REACTIONS (4)
  - Ammonia increased [Unknown]
  - Confusional state [Unknown]
  - Off label use [Unknown]
  - Pneumonia [Unknown]
